FAERS Safety Report 23175109 (Version 1)
Quarter: 2023Q4

REPORT INFORMATION
  Report Type: Report from Study
  Country: US (occurrence: US)
  Receive Date: 20231112
  Receipt Date: 20231112
  Transmission Date: 20240110
  Serious: Yes (Hospitalization)
  Sender: FDA-Public Use
  Company Number: US-ABBVIE-5487711

PATIENT
  Sex: Female
  Weight: 56.699 kg

DRUGS (2)
  1. IMBRUVICA [Suspect]
     Active Substance: IBRUTINIB
     Indication: Waldenstrom^s macroglobulinaemia
     Dosage: MISSED DOSE
     Route: 048
     Dates: start: 201912, end: 2023
  2. IMBRUVICA [Suspect]
     Active Substance: IBRUTINIB
     Indication: Waldenstrom^s macroglobulinaemia
     Dosage: DRUG START DATE: 2023
     Route: 048

REACTIONS (2)
  - Pleural effusion [Recovering/Resolving]
  - Cardiac disorder [Unknown]

NARRATIVE: CASE EVENT DATE: 20230101
